FAERS Safety Report 16267198 (Version 1)
Quarter: 2019Q2

REPORT INFORMATION
  Report Type: Spontaneous
  Country: FR (occurrence: FR)
  Receive Date: 20190502
  Receipt Date: 20190502
  Transmission Date: 20190711
  Serious: Yes (Other)
  Sender: FDA-Public Use
  Company Number: FR-LUNDBECK-DKLU2071640

PATIENT
  Age: 37 Year
  Sex: Male

DRUGS (3)
  1. NEULEPTIL [Suspect]
     Active Substance: PERICIAZINE
     Indication: STURGE-WEBER SYNDROME
     Route: 048
  2. URBANYL [Suspect]
     Active Substance: CLOBAZAM
     Indication: STURGE-WEBER SYNDROME
     Route: 048
  3. OXCARBAZEPINE. [Suspect]
     Active Substance: OXCARBAZEPINE
     Indication: STURGE-WEBER SYNDROME
     Route: 048

REACTIONS (1)
  - Hyponatraemia [Not Recovered/Not Resolved]

NARRATIVE: CASE EVENT DATE: 20190328
